FAERS Safety Report 6239970-8 (Version None)
Quarter: 2009Q2

REPORT INFORMATION
  Report Type: 
  Country: None (occurrence: None)
  Receive Date: 20090619
  Receipt Date: 20090605
  Transmission Date: 20091009
  Serious: Yes (Life-Threatening, Hospitalization)
  Sender: FDA-Public Use
  Company Number: 8046602

PATIENT
  Age: 62 Year
  Sex: Male
  Weight: 94.3 kg

DRUGS (20)
  1. CIMZIA [Suspect]
     Indication: CROHN'S DISEASE
     Dosage: 400 MG SC
     Route: 058
     Dates: start: 20090519, end: 20090527
  2. PRILOSEC [Concomitant]
  3. COUMADIN [Concomitant]
  4. ENTOCORT EC [Concomitant]
  5. LOMOTIL [Concomitant]
  6. BENTYL [Concomitant]
  7. LOPRESSOR [Concomitant]
  8. NORVASC [Concomitant]
  9. BONIVA [Concomitant]
  10. TEKTURNA [Concomitant]
  11. CIPRO [Concomitant]
  12. MOBIC [Concomitant]
  13. VICODIN [Concomitant]
  14. VITAMIN B-12 [Concomitant]
  15. VITAMIN D [Concomitant]
  16. PREDNISONE TAB [Concomitant]
  17. GLIMEPIRIDE [Concomitant]
  18. LIPITOR [Concomitant]
  19. PLAVIX [Concomitant]
  20. PRINIVIL [Concomitant]

REACTIONS (3)
  - CHEST DISCOMFORT [None]
  - HEPATIC ENZYME INCREASED [None]
  - MYOCARDIAL INFARCTION [None]
